FAERS Safety Report 16629802 (Version 1)
Quarter: 2019Q3

REPORT INFORMATION
  Report Type: Spontaneous
  Country: CA (occurrence: CA)
  Receive Date: 20190725
  Receipt Date: 20190725
  Transmission Date: 20191004
  Serious: Yes (Death, Other)
  Sender: FDA-Public Use
  Company Number: CA-TEVA-2019-CA-1081731

PATIENT
  Age: 25 Year
  Sex: Male

DRUGS (3)
  1. METHAMPHETAMINE [Suspect]
     Active Substance: METHAMPHETAMINE
     Indication: PRODUCT USED FOR UNKNOWN INDICATION
     Route: 065
  2. MORPHINE SULFATE INJECTION USP [Suspect]
     Active Substance: MORPHINE SULFATE
     Indication: PRODUCT USED FOR UNKNOWN INDICATION
     Route: 065
  3. FENTANYL. [Suspect]
     Active Substance: FENTANYL
     Indication: PRODUCT USED FOR UNKNOWN INDICATION
     Route: 065

REACTIONS (9)
  - Personality change [Fatal]
  - Mental disorder [Fatal]
  - Autophobia [Fatal]
  - Dermatillomania [Fatal]
  - Panic reaction [Fatal]
  - Substance dependence [Fatal]
  - Substance abuse [Fatal]
  - Anger [Fatal]
  - Overdose [Fatal]
